FAERS Safety Report 16369929 (Version 2)
Quarter: 2019Q2

REPORT INFORMATION
  Report Type: Spontaneous
  Country: BG (occurrence: BG)
  Receive Date: 20190530
  Receipt Date: 20190619
  Transmission Date: 20190711
  Serious: Yes (Other)
  Sender: FDA-Public Use
  Company Number: BG-AMGEN-BGRSP2019082652

PATIENT
  Age: 70 Year
  Sex: Female

DRUGS (2)
  1. VIGANTOL [COLECALCIFEROL] [Concomitant]
     Active Substance: CHOLECALCIFEROL
     Dosage: 2 X 10 DROPS PER WEEK
  2. PROLIA [Suspect]
     Active Substance: DENOSUMAB
     Indication: OSTEOPOROSIS
     Dosage: UNK
     Route: 065
     Dates: start: 20181110

REACTIONS (3)
  - Paraesthesia [Unknown]
  - Musculoskeletal stiffness [Recovered/Resolved]
  - Exostosis [Unknown]

NARRATIVE: CASE EVENT DATE: 201905
